FAERS Safety Report 10494113 (Version 1)
Quarter: 2014Q4

REPORT INFORMATION
  Report Type: Spontaneous
  Country: US (occurrence: None)
  Receive Date: 20141002
  Receipt Date: 20141002
  Transmission Date: 20150528
  Serious: Yes (Disabling)
  Sender: FDA-Public Use
  Company Number: None

PATIENT
  Age: 47 Year
  Sex: Female
  Weight: 77.11 kg

DRUGS (1)
  1. GABAPENTIN. [Suspect]
     Active Substance: GABAPENTIN
     Indication: ANXIETY
     Dosage: 1 PILL, THREE TIMES DAILY, TAKEN BY MOUTH
     Route: 048
     Dates: start: 20110201, end: 20130703

REACTIONS (7)
  - Alopecia [None]
  - Burning sensation [None]
  - Drug withdrawal syndrome [None]
  - Hair disorder [None]
  - Pruritus [None]
  - Allergy to animal [None]
  - Formication [None]

NARRATIVE: CASE EVENT DATE: 20130712
